FAERS Safety Report 18460699 (Version 1)
Quarter: 2020Q4

REPORT INFORMATION
  Report Type: Spontaneous
  Country: US (occurrence: US)
  Receive Date: 20201104
  Receipt Date: 20201104
  Transmission Date: 20210114
  Serious: No
  Sender: FDA-Public Use
  Company Number: US-AUROBINDO-AUR-APL-2020-036713

PATIENT
  Sex: Female

DRUGS (1)
  1. METOPROLOL TARTRATE FILM COATED TABLETS USP 50 MG [Suspect]
     Active Substance: METOPROLOL TARTRATE
     Indication: HYPERTENSION
     Dosage: 2 DOSAGE FORM, DAILY 02 TABLETS PER DAY (01 IN THE MORNING AND 01 AT NIGHT)
     Route: 065
     Dates: start: 20200708

REACTIONS (6)
  - Feeling abnormal [Unknown]
  - Somnolence [Unknown]
  - Gait disturbance [Unknown]
  - Illness [Unknown]
  - Dizziness [Unknown]
  - Product quality issue [Unknown]

NARRATIVE: CASE EVENT DATE: 20200708
